FAERS Safety Report 24259338 (Version 5)
Quarter: 2024Q4

REPORT INFORMATION
  Report Type: Report from Study
  Country: CA (occurrence: CA)
  Receive Date: 20240828
  Receipt Date: 20241111
  Transmission Date: 20250115
  Serious: Yes (Hospitalization, Other)
  Sender: JOHNSON AND JOHNSON
  Company Number: CA-JNJFOC-20240581821

PATIENT
  Age: 60 Year
  Sex: Male

DRUGS (1)
  1. REMICADE [Suspect]
     Active Substance: INFLIXIMAB
     Indication: Crohn^s disease
     Route: 041

REACTIONS (5)
  - Small intestinal obstruction [Unknown]
  - Intestinal perforation [Unknown]
  - Sepsis [Unknown]
  - Postoperative abscess [Unknown]
  - Off label use [Unknown]

NARRATIVE: CASE EVENT DATE: 20240101
